FAERS Safety Report 11362955 (Version 1)
Quarter: 2015Q3

REPORT INFORMATION
  Report Type: Spontaneous
  Country: KP (occurrence: KR)
  Receive Date: 20150810
  Receipt Date: 20150810
  Transmission Date: 20151125
  Serious: Yes (Death, Other)
  Sender: FDA-Public Use
  Company Number: PHHY2015KR092402

PATIENT
  Age: 76 Year
  Sex: Male

DRUGS (2)
  1. ALLOPURINOL. [Suspect]
     Active Substance: ALLOPURINOL
     Indication: PROPHYLAXIS
     Dosage: 300 MG, QD
     Route: 065
  2. ALLOPURINOL. [Suspect]
     Active Substance: ALLOPURINOL
     Dosage: 300 MG, QD
     Route: 065

REACTIONS (8)
  - Subdural haemorrhage [Fatal]
  - Toxic epidermal necrolysis [Unknown]
  - Erythema multiforme [Unknown]
  - Azotaemia [Fatal]
  - Drug reaction with eosinophilia and systemic symptoms [Unknown]
  - Hepatic enzyme abnormal [Unknown]
  - Pyrexia [Unknown]
  - Renal impairment [Unknown]
